FAERS Safety Report 5012018-9 (Version None)
Quarter: 2006Q2

REPORT INFORMATION
  Report Type: 
  Country: None (occurrence: None)
  Receive Date: 20060524
  Receipt Date: 20060510
  Transmission Date: 20061013
  Serious: Yes (Other)
  Sender: FDA-Public Use
  Company Number: 2006-BP-05369RO

PATIENT
  Age: 32 Year
  Sex: Male

DRUGS (3)
  1. MIRTAZAPINE [Suspect]
     Indication: DEPRESSION
     Dosage: 30 MG/DAY
     Dates: start: 20040514, end: 20040519
  2. DOMPERIDONE (DOMPERIDONE) [Suspect]
     Indication: DYSPEPSIA
     Dosage: SEE IMAGE
     Dates: start: 20040401
  3. DOMPERIDONE (DOMPERIDONE) [Suspect]
     Indication: DYSPEPSIA
     Dosage: SEE IMAGE
     Dates: start: 20040520

REACTIONS (3)
  - INSOMNIA [None]
  - MAJOR DEPRESSION [None]
  - RESTLESS LEGS SYNDROME [None]
